FAERS Safety Report 9706252 (Version 1)
Quarter: 2013Q4

REPORT INFORMATION
  Report Type: Report from Study
  Country: CZ (occurrence: CZ)
  Receive Date: 20131125
  Receipt Date: 20131125
  Transmission Date: 20140711
  Serious: Yes (Other)
  Sender: FDA-Public Use
  Company Number: CZ-ROCHE-1305869

PATIENT
  Sex: Female

DRUGS (5)
  1. HERCEPTIN [Suspect]
     Indication: BREAST CANCER
     Route: 065
  2. CAPECITABINE [Concomitant]
     Route: 065
  3. PACLITAXEL [Concomitant]
  4. DOCETAXEL [Concomitant]
  5. VINORELBINE [Concomitant]

REACTIONS (2)
  - Cardiotoxicity [Unknown]
  - Disease progression [Unknown]
